FAERS Safety Report 4438433-X (Version None)
Quarter: 2004Q3

REPORT INFORMATION
  Report Type: 
  Country: None (occurrence: None)
  Receive Date: 20040827
  Receipt Date: 20040817
  Transmission Date: 20050211
  Serious: Yes (Other)
  Sender: FDA-Public Use
  Company Number: 2004057471

PATIENT
  Age: 62 Year
  Sex: Male

DRUGS (4)
  1. NORVASC [Suspect]
     Indication: HYPERTENSION
     Dosage: 5 MG (5 MG, 1 IN  1 D), ORAL
     Route: 048
     Dates: start: 20020101
  2. CO-EPRIL, ENALAPRIL / HYDROCHLOROTHIAZIDE (ENALAPRIL MALEATE, HYDROCHL [Suspect]
     Indication: HYPERTENSION
     Dosage: 20/12.5 MG ( 1 IN 1D), ORAL
     Route: 048
     Dates: start: 20040101, end: 20040628
  3. GLIMEPIRIDE [Concomitant]
  4. METFORMIN HCL [Concomitant]

REACTIONS (4)
  - CYTOLYTIC HEPATITIS [None]
  - EOSINOPHILIA [None]
  - HEPATIC TRAUMA [None]
  - LIVER DISORDER [None]
